FAERS Safety Report 5164608-0 (Version None)
Quarter: 2006Q4

REPORT INFORMATION
  Report Type: 
  Country: None (occurrence: None)
  Receive Date: 20061124
  Receipt Date: 20061113
  Transmission Date: 20070319
  Serious: Yes (Other)
  Sender: FDA-Public Use
  Company Number: 2006141170

PATIENT
  Age: 36 Year
  Sex: Male
  Weight: 77.1115 kg

DRUGS (1)
  1. LIPITOR [Suspect]
     Indication: BLOOD CHOLESTEROL INCREASED
     Dosage: 20 MG (20 MG, 1 IN 1 D), ORAL
     Route: 048
     Dates: start: 20040101, end: 20040601

REACTIONS (22)
  - ANXIETY [None]
  - BURNING SENSATION [None]
  - DISTURBANCE IN ATTENTION [None]
  - FEELING ABNORMAL [None]
  - FLATULENCE [None]
  - FOAMING AT MOUTH [None]
  - GASTRIC DISORDER [None]
  - GASTROOESOPHAGEAL REFLUX DISEASE [None]
  - GLAUCOMA [None]
  - HEADACHE [None]
  - HEPATIC ENZYME INCREASED [None]
  - MENTAL IMPAIRMENT [None]
  - MIGRAINE [None]
  - NAUSEA [None]
  - PAIN [None]
  - SOMNOLENCE [None]
  - THIRST [None]
  - TONGUE DISCOLOURATION [None]
  - UNEVALUABLE EVENT [None]
  - VERTIGO [None]
  - VISUAL DISTURBANCE [None]
  - WEIGHT DECREASED [None]
